FAERS Safety Report 14711184 (Version 2)
Quarter: 2018Q2

REPORT INFORMATION
  Report Type: Report from Study
  Country: JP (occurrence: JP)
  Receive Date: 20180403
  Receipt Date: 20180410
  Transmission Date: 20180711
  Serious: Yes (Other)
  Sender: FDA-Public Use
  Company Number: JP-DSJP-DSJ-2017-125151

PATIENT

DRUGS (60)
  1. LOXOPROFEN                         /00890702/ [Concomitant]
     Active Substance: LOXOPROFEN
     Dosage: 60MG/DAY
     Route: 048
     Dates: start: 20170429, end: 20170518
  2. CEFMETAZOLE NA [Concomitant]
     Active Substance: CEFMETAZOLE
     Dosage: 3G/DAY
     Route: 042
     Dates: start: 20170427, end: 20170427
  3. HEPARIN CALCIUM [Concomitant]
     Active Substance: HEPARIN CALCIUM
     Dosage: 5000IU/DAY
     Route: 042
     Dates: start: 20170429, end: 20170429
  4. PACLITAXEL. [Concomitant]
     Active Substance: PACLITAXEL
     Dosage: 100MG/DAY
     Route: 042
     Dates: start: 20170526, end: 20170526
  5. CARBOPLATIN. [Concomitant]
     Active Substance: CARBOPLATIN
     Dosage: 150MG/DAY
     Route: 042
     Dates: start: 20170616, end: 20170616
  6. LEVOFLOXACIN                       /01278903/ [Concomitant]
     Active Substance: LEVOFLOXACIN
     Dosage: 500MG/DAY
     Route: 048
     Dates: start: 20170420, end: 20170422
  7. CEFMETAZOLE NA [Concomitant]
     Active Substance: CEFMETAZOLE
     Dosage: 2G/DAY
     Route: 042
     Dates: start: 20170428, end: 20170428
  8. FENTANYL INJECTION [Concomitant]
     Active Substance: FENTANYL
     Dosage: 0.3MG/DAY
     Route: 042
     Dates: start: 20170427, end: 20170427
  9. ROPION [Concomitant]
     Active Substance: FLURBIPROFEN AXETIL
     Dosage: 50MG/DAY
     Route: 042
     Dates: start: 20170428, end: 20170428
  10. GRANISETRON                        /01178102/ [Concomitant]
     Active Substance: GRANISETRON
     Dosage: 3MG/DAY
     Route: 042
     Dates: start: 20170616, end: 20170616
  11. DEXART [Concomitant]
     Active Substance: DEXAMETHASONE SODIUM PHOSPHATE
     Dosage: 6.6MG/DAY
     Route: 042
     Dates: start: 20170602, end: 20170602
  12. DEXART [Concomitant]
     Active Substance: DEXAMETHASONE SODIUM PHOSPHATE
     Dosage: 6.6MG/DAY
     Route: 042
     Dates: start: 20170616, end: 20170616
  13. PACLITAXEL. [Concomitant]
     Active Substance: PACLITAXEL
     Dosage: 100MG/DAY
     Route: 042
     Dates: start: 20170609, end: 20170609
  14. CARBOPLATIN. [Concomitant]
     Active Substance: CARBOPLATIN
     Dosage: 138MG/DAY
     Route: 042
     Dates: start: 20170526, end: 20170526
  15. EDOXABAN [Suspect]
     Active Substance: EDOXABAN TOSYLATE
     Indication: PULMONARY EMBOLISM
     Dosage: 30 MG, QD
     Route: 048
     Dates: start: 20170411, end: 20170425
  16. HEPARIN [Concomitant]
     Active Substance: HEPARIN SODIUM
     Dosage: 2496-4992IU/DAY
     Route: 042
     Dates: start: 20170426, end: 20170427
  17. SOLDEM 3A [Concomitant]
     Active Substance: CARBOHYDRATES\POTASSIUM CHLORIDE\SODIUM CHLORIDE\SODIUM LACTATE
     Dosage: 495ML/DAY
     Route: 042
     Dates: start: 20170427, end: 20170427
  18. DEXART [Concomitant]
     Active Substance: DEXAMETHASONE SODIUM PHOSPHATE
     Dosage: 6.6MG/DAY
     Route: 042
     Dates: start: 20170526, end: 20170526
  19. GASTER [Concomitant]
     Active Substance: FAMOTIDINE
     Dosage: 20MG/DAY
     Route: 042
     Dates: start: 20170602, end: 20170602
  20. GASTER [Concomitant]
     Active Substance: FAMOTIDINE
     Dosage: 20MG/DAY
     Route: 042
     Dates: start: 20170609, end: 20170609
  21. CARBOPLATIN. [Concomitant]
     Active Substance: CARBOPLATIN
     Dosage: 450MG/DAY
     Route: 042
     Dates: start: 20170526, end: 20170526
  22. MAGNESIUM OXIDE. [Concomitant]
     Active Substance: MAGNESIUM OXIDE
     Dosage: 990MG/DAY
     Route: 048
     Dates: start: 20170506
  23. HEPARIN CALCIUM [Concomitant]
     Active Substance: HEPARIN CALCIUM
     Dosage: 5000IU/DAY
     Route: 058
     Dates: start: 20170427, end: 20170427
  24. GRANISETRON                        /01178102/ [Concomitant]
     Active Substance: GRANISETRON
     Dosage: 3MG/DAY
     Route: 042
     Dates: start: 20170526, end: 20170526
  25. DEXART [Concomitant]
     Active Substance: DEXAMETHASONE SODIUM PHOSPHATE
     Dosage: 6.6MG/DAY
     Route: 042
     Dates: start: 20170630, end: 20170630
  26. POLARAMINE [Concomitant]
     Active Substance: DEXCHLORPHENIRAMINE MALEATE
     Dosage: 5MG/DAY
     Route: 042
     Dates: start: 20170602, end: 20170602
  27. POLARAMINE [Concomitant]
     Active Substance: DEXCHLORPHENIRAMINE MALEATE
     Dosage: 5MG/DAY
     Route: 042
     Dates: start: 20170609, end: 20170609
  28. PACLITAXEL. [Concomitant]
     Active Substance: PACLITAXEL
     Dosage: 100MG/DAY
     Route: 042
     Dates: start: 20170602, end: 20170602
  29. PACLITAXEL. [Concomitant]
     Active Substance: PACLITAXEL
     Dosage: 100MG/DAY
     Route: 042
     Dates: start: 20170616, end: 20170616
  30. GASTER [Concomitant]
     Active Substance: FAMOTIDINE
     Dosage: 20MG/DAY
     Route: 042
     Dates: start: 20170526, end: 20170526
  31. GASTER [Concomitant]
     Active Substance: FAMOTIDINE
     Dosage: 20MG/DAY
     Route: 042
     Dates: start: 20170616, end: 20170616
  32. PACLITAXEL. [Concomitant]
     Active Substance: PACLITAXEL
     Dosage: 18MG/DAY
     Route: 042
     Dates: start: 20170602, end: 20170602
  33. BISOPROLOL FUMARATE. [Concomitant]
     Active Substance: BISOPROLOL FUMARATE
     Dosage: 2.5MG/DAY
     Route: 048
  34. DAIKENCHUTO [Concomitant]
     Active Substance: HERBALS
     Dosage: 7.5G/DAY
     Route: 048
     Dates: start: 20170504, end: 20170510
  35. SOLDEM 3A [Concomitant]
     Active Substance: CARBOHYDRATES\POTASSIUM CHLORIDE\SODIUM CHLORIDE\SODIUM LACTATE
     Dosage: 660ML/DAY
     Route: 042
     Dates: start: 20170426, end: 20170426
  36. ULTIVA [Concomitant]
     Active Substance: REMIFENTANIL HYDROCHLORIDE
     Dosage: 2MG/DAY
     Route: 042
     Dates: start: 20170427, end: 20170427
  37. HEPARIN CALCIUM [Concomitant]
     Active Substance: HEPARIN CALCIUM
     Dosage: 10000IU/DAY
     Route: 042
     Dates: start: 20170428, end: 20170428
  38. LACTEC [Concomitant]
     Active Substance: CALCIUM CHLORIDE ANHYDROUS\POTASSIUM CHLORIDE\SODIUM CHLORIDE\SODIUM LACTATE
     Dosage: 500ML/DAY
     Route: 042
     Dates: start: 20170428, end: 20170428
  39. CLEXANE [Concomitant]
     Active Substance: ENOXAPARIN SODIUM
     Dosage: 2000IU/DAY
     Route: 058
     Dates: start: 20170429, end: 20170429
  40. POLARAMINE [Concomitant]
     Active Substance: DEXCHLORPHENIRAMINE MALEATE
     Dosage: 5MG/DAY
     Route: 042
     Dates: start: 20170630, end: 20170630
  41. PACLITAXEL. [Concomitant]
     Active Substance: PACLITAXEL
     Dosage: 18MG/DAY
     Route: 042
     Dates: start: 20170526, end: 20170526
  42. PACLITAXEL. [Concomitant]
     Active Substance: PACLITAXEL
     Dosage: 18MG/DAY
     Route: 042
     Dates: start: 20170616, end: 20170616
  43. PACLITAXEL. [Concomitant]
     Active Substance: PACLITAXEL
     Dosage: 100MG/DAY
     Route: 042
     Dates: start: 20170630, end: 20170630
  44. PACLITAXEL. [Concomitant]
     Active Substance: PACLITAXEL
     Dosage: 18MG/DAY
     Route: 042
     Dates: start: 20170630, end: 20170630
  45. CARBOPLATIN. [Concomitant]
     Active Substance: CARBOPLATIN
     Dosage: 450MG/DAY
     Route: 042
     Dates: start: 20170616, end: 20170616
  46. CARBOPLATIN. [Concomitant]
     Active Substance: CARBOPLATIN
     Dosage: 13MG/DAY
     Route: 042
     Dates: start: 20170616, end: 20170616
  47. SOLDEM 3A [Concomitant]
     Active Substance: CARBOHYDRATES\POTASSIUM CHLORIDE\SODIUM CHLORIDE\SODIUM LACTATE
     Dosage: 1320ML/DAY
     Route: 042
     Dates: start: 20170428, end: 20170429
  48. PRIMPERAN [Concomitant]
     Active Substance: METOCLOPRAMIDE HYDROCHLORIDE
     Dosage: 10MG/DAY
     Route: 042
     Dates: start: 20170428, end: 20170428
  49. ROPION [Concomitant]
     Active Substance: FLURBIPROFEN AXETIL
     Dosage: 10000IU/DAY
     Route: 042
     Dates: start: 20170429, end: 20170429
  50. GRANISETRON                        /01178102/ [Concomitant]
     Active Substance: GRANISETRON
     Dosage: 3MG/DAY
     Route: 042
     Dates: start: 20170602, end: 20170602
  51. GRANISETRON                        /01178102/ [Concomitant]
     Active Substance: GRANISETRON
     Dosage: 3MG/DAY
     Route: 042
     Dates: start: 20170630, end: 20170630
  52. DEXART [Concomitant]
     Active Substance: DEXAMETHASONE SODIUM PHOSPHATE
     Dosage: 6.6MG/DAY
     Route: 042
     Dates: start: 20170609, end: 20170609
  53. GASTER [Concomitant]
     Active Substance: FAMOTIDINE
     Dosage: 20MG/DAY
     Route: 042
     Dates: start: 20170630, end: 20170630
  54. EDOXABAN [Suspect]
     Active Substance: EDOXABAN TOSYLATE
     Dosage: 30 MG, QD
     Route: 048
     Dates: start: 20170505
  55. AMLODIPINE                         /00972402/ [Concomitant]
     Active Substance: AMLODIPINE BESYLATE
     Dosage: 5MG/DAY
     Route: 048
  56. CLEXANE [Concomitant]
     Active Substance: ENOXAPARIN SODIUM
     Dosage: 4000IU/DAY
     Route: 058
     Dates: start: 20170430, end: 20170504
  57. GRANISETRON                        /01178102/ [Concomitant]
     Active Substance: GRANISETRON
     Dosage: 3MG/DAY
     Route: 042
     Dates: start: 20170609, end: 20170609
  58. POLARAMINE [Concomitant]
     Active Substance: DEXCHLORPHENIRAMINE MALEATE
     Dosage: 5MG/DAY
     Route: 042
     Dates: start: 20170526, end: 20170526
  59. POLARAMINE [Concomitant]
     Active Substance: DEXCHLORPHENIRAMINE MALEATE
     Dosage: 5MG/DAY
     Route: 042
     Dates: start: 20170616, end: 20170616
  60. PACLITAXEL. [Concomitant]
     Active Substance: PACLITAXEL
     Dosage: 18MG/DAY
     Route: 042
     Dates: start: 20170609, end: 20170609

REACTIONS (6)
  - Anaemia [Recovering/Resolving]
  - Neutropenia [Recovered/Resolved]
  - Vomiting [Recovered/Resolved]
  - Genital haemorrhage [Recovered/Resolved]
  - Procedural pain [Recovered/Resolved]
  - Ovarian cancer recurrent [Unknown]

NARRATIVE: CASE EVENT DATE: 20170427
